FAERS Safety Report 13958021 (Version 1)
Quarter: 2017Q3

REPORT INFORMATION
  Report Type: Spontaneous
  Country: US (occurrence: US)
  Receive Date: 20170912
  Receipt Date: 20170912
  Transmission Date: 20171128
  Serious: No
  Sender: FDA-Public Use
  Company Number: US-009507513-1708USA006762

PATIENT
  Age: 18 Year
  Sex: Female
  Weight: 52.61 kg

DRUGS (1)
  1. NEXPLANON [Suspect]
     Active Substance: ETONOGESTREL
     Indication: CONTRACEPTION
     Dosage: 1 DF, FREQUENCY: 3 YEARS; LEFT ARM
     Route: 059
     Dates: start: 20170731

REACTIONS (3)
  - Pain [Unknown]
  - Implant site irritation [Unknown]
  - Tenderness [Unknown]

NARRATIVE: CASE EVENT DATE: 20170815
